FAERS Safety Report 7758353-2 (Version None)
Quarter: 2011Q3

REPORT INFORMATION
  Report Type: 
  Country: None (occurrence: None)
  Receive Date: 20110825
  Receipt Date: 20110718
  Transmission Date: 20111222
  Serious: Yes (Other)
  Sender: FDA-Public Use
  Company Number: 332109

PATIENT
  Age: 58 Year
  Sex: Female
  Weight: 109.8 kg

DRUGS (7)
  1. VICTOZA [Suspect]
     Indication: PRODUCT USED FOR UNKNOWN INDICATION
     Dosage: 1.8 MG, QD, SUBCUTANEOUS
     Route: 058
     Dates: start: 20110622
  2. VICTOZA [Suspect]
     Indication: PRODUCT USED FOR UNKNOWN INDICATION
     Dosage: 1.8 MG, QD, SUBCUTANEOUS
     Route: 058
     Dates: end: 20110711
  3. SIMVASTATIN [Concomitant]
  4. LISINOPRIL [Concomitant]
  5. LEVOTHYROID (LEVOTHYROXINE SODIUM) [Concomitant]
  6. METFORMIN HCL [Concomitant]
  7. ADVAIR HFA [Concomitant]

REACTIONS (1)
  - ANGIOEDEMA [None]
